FAERS Safety Report 6887906-9 (Version None)
Quarter: 2010Q3

REPORT INFORMATION
  Report Type: 
  Country: None (occurrence: None)
  Receive Date: 20100730
  Receipt Date: 20100624
  Transmission Date: 20110219
  Serious: Yes (Death, Other)
  Sender: FDA-Public Use
  Company Number: US-BAXTER-2010BH003522

PATIENT
  Age: 65 Year
  Sex: Male

DRUGS (54)
  1. HEPARIN SODIUM [Suspect]
     Indication: AORTIC ANEURYSM REPAIR
     Route: 042
     Dates: start: 20080515, end: 20080515
  2. HEPARIN SODIUM [Suspect]
     Indication: AORTIC BYPASS
     Route: 042
     Dates: start: 20080515, end: 20080515
  3. HEPARIN SODIUM [Suspect]
     Indication: ENDARTERECTOMY
     Route: 042
     Dates: start: 20080515, end: 20080515
  4. HEPARIN SODIUM [Suspect]
     Indication: THROMBOEMBOLECTOMY
     Route: 042
     Dates: start: 20080515, end: 20080515
  5. HEPARIN SODIUM [Suspect]
     Indication: PERIPHERAL ARTERY ANGIOPLASTY
     Route: 042
     Dates: start: 20080515, end: 20080515
  6. HEPARIN SODIUM [Suspect]
     Indication: FASCIOTOMY
     Route: 042
     Dates: start: 20080515, end: 20080515
  7. HEPARIN SODIUM [Suspect]
     Route: 042
     Dates: start: 20080515, end: 20080515
  8. HEPARIN SODIUM [Suspect]
     Route: 042
     Dates: start: 20080515, end: 20080515
  9. HEPARIN SODIUM [Suspect]
     Route: 042
     Dates: start: 20080515, end: 20080515
  10. HEPARIN SODIUM [Suspect]
     Route: 042
     Dates: start: 20080515, end: 20080515
  11. HEPARIN SODIUM [Suspect]
     Route: 042
     Dates: start: 20080515, end: 20080515
  12. HEPARIN SODIUM [Suspect]
     Route: 042
     Dates: start: 20080515, end: 20080515
  13. HEPARIN SODIUM [Suspect]
     Route: 042
     Dates: start: 20080515, end: 20080515
  14. HEPARIN SODIUM [Suspect]
     Route: 042
     Dates: start: 20080515, end: 20080515
  15. HEPARIN SODIUM [Suspect]
     Route: 042
     Dates: start: 20080515, end: 20080515
  16. HEPARIN SODIUM [Suspect]
     Route: 042
     Dates: start: 20080515, end: 20080515
  17. HEPARIN SODIUM [Suspect]
     Route: 042
     Dates: start: 20080515, end: 20080515
  18. HEPARIN SODIUM [Suspect]
     Route: 042
     Dates: start: 20080515, end: 20080515
  19. HEPARIN SODIUM [Suspect]
     Route: 042
     Dates: start: 20080515, end: 20080515
  20. HEPARIN SODIUM [Suspect]
     Route: 042
     Dates: start: 20080515, end: 20080515
  21. HEPARIN SODIUM [Suspect]
     Route: 042
     Dates: start: 20080515, end: 20080515
  22. HEPARIN SODIUM [Suspect]
     Route: 042
     Dates: start: 20080515, end: 20080515
  23. HEPARIN SODIUM [Suspect]
     Route: 042
     Dates: start: 20080515, end: 20080515
  24. HEPARIN SODIUM [Suspect]
     Route: 042
     Dates: start: 20080515, end: 20080515
  25. ARGATROBAN [Suspect]
     Indication: PRODUCT USED FOR UNKNOWN INDICATION
     Route: 042
     Dates: start: 20080515, end: 20080501
  26. ARGATROBAN [Suspect]
     Route: 042
     Dates: start: 20080518, end: 20080501
  27. ASPIRIN [Concomitant]
     Indication: PRODUCT USED FOR UNKNOWN INDICATION
     Route: 065
  28. FUROSEMIDE [Concomitant]
     Indication: PRODUCT USED FOR UNKNOWN INDICATION
     Route: 065
  29. VASELINE [Concomitant]
     Indication: LIP DRY
     Route: 065
  30. LACRI-LUBE [Concomitant]
     Indication: DRY EYE
     Route: 065
  31. TITRATE [Concomitant]
     Indication: PRODUCT USED FOR UNKNOWN INDICATION
     Route: 065
  32. HETASTARCH 6% IN 0.9% SODIUM CHLORIDE IN PLASTIC CONTAINER [Concomitant]
     Indication: PRODUCT USED FOR UNKNOWN INDICATION
     Route: 065
  33. MIDAZOLAM HCL [Concomitant]
     Indication: PRODUCT USED FOR UNKNOWN INDICATION
     Route: 065
  34. MIDAZOLAM HCL [Concomitant]
     Route: 065
  35. FAMOTIDINE [Concomitant]
     Indication: PRODUCT USED FOR UNKNOWN INDICATION
     Route: 065
  36. CEFAZOLIN [Concomitant]
     Indication: PRODUCT USED FOR UNKNOWN INDICATION
     Route: 042
  37. ALUMINUM HYDROXIDE GEL [Concomitant]
     Indication: PRODUCT USED FOR UNKNOWN INDICATION
     Route: 065
  38. NITROGLYCERIN [Concomitant]
     Indication: PRODUCT USED FOR UNKNOWN INDICATION
     Route: 065
  39. ACETAMINOPHEN [Concomitant]
     Indication: PRODUCT USED FOR UNKNOWN INDICATION
     Route: 065
  40. PROXIMAL PORT [Concomitant]
     Indication: PRODUCT USED FOR UNKNOWN INDICATION
     Route: 065
  41. SODIUM CHLORIDE [Concomitant]
     Indication: PRODUCT USED FOR UNKNOWN INDICATION
     Route: 042
  42. LIDOCAINE [Concomitant]
     Indication: PRODUCT USED FOR UNKNOWN INDICATION
     Route: 065
  43. MAGNESIUM SULFATE [Concomitant]
     Indication: PRODUCT USED FOR UNKNOWN INDICATION
     Route: 065
  44. FENTANYL [Concomitant]
     Indication: PRODUCT USED FOR UNKNOWN INDICATION
     Route: 065
  45. SODIUM BICARBONATE [Concomitant]
     Indication: PRODUCT USED FOR UNKNOWN INDICATION
     Route: 065
  46. CALCIUM CHLORIDE ^BIOTIKA^ [Concomitant]
     Indication: PRODUCT USED FOR UNKNOWN INDICATION
     Route: 065
  47. LIDOCAINE [Concomitant]
     Route: 065
  48. ASPIRIN [Concomitant]
     Route: 065
  49. MORPHINE [Concomitant]
     Indication: PRODUCT USED FOR UNKNOWN INDICATION
     Route: 065
  50. POTASSIUM CHLORIDE [Concomitant]
     Indication: PRODUCT USED FOR UNKNOWN INDICATION
     Route: 042
  51. LABETALOL HCL [Concomitant]
     Indication: PRODUCT USED FOR UNKNOWN INDICATION
     Route: 065
  52. NEURONTIN [Concomitant]
     Indication: PRODUCT USED FOR UNKNOWN INDICATION
     Route: 065
  53. ATORVASTATIN [Concomitant]
     Indication: PRODUCT USED FOR UNKNOWN INDICATION
     Route: 065
  54. BUPROPION [Concomitant]
     Indication: PRODUCT USED FOR UNKNOWN INDICATION
     Route: 065

REACTIONS (16)
  - ATRIAL FIBRILLATION [None]
  - CIRCULATORY COLLAPSE [None]
  - COAGULOPATHY [None]
  - HEPATIC FAILURE [None]
  - HYPERKALAEMIA [None]
  - HYPOTENSION [None]
  - LACTIC ACIDOSIS [None]
  - MOUTH HAEMORRHAGE [None]
  - MULTI-ORGAN FAILURE [None]
  - PERIPHERAL VASCULAR DISORDER [None]
  - RENAL FAILURE ACUTE [None]
  - RHABDOMYOLYSIS [None]
  - THROMBOCYTOPENIA [None]
  - THROMBOSIS IN DEVICE [None]
  - UNRESPONSIVE TO STIMULI [None]
  - VASCULAR GRAFT THROMBOSIS [None]
